FAERS Safety Report 15372099 (Version 1)
Quarter: 2018Q3

REPORT INFORMATION
  Report Type: Spontaneous
  Country: FR (occurrence: FR)
  Receive Date: 20180911
  Receipt Date: 20180911
  Transmission Date: 20181010
  Serious: Yes (Hospitalization)
  Sender: FDA-Public Use
  Company Number: PHHY2018FR092412

PATIENT
  Age: 41 Year
  Sex: Male
  Weight: 101 kg

DRUGS (3)
  1. THIOPENTAL PANPHARMA [Suspect]
     Active Substance: THIOPENTAL
     Indication: ANAESTHESIA
     Dosage: 140 MG, UNK
     Route: 042
  2. TRILEPTAL [Suspect]
     Active Substance: OXCARBAZEPINE
     Indication: EPILEPSY
     Dosage: 900 MG, QD
     Route: 048
  3. KEPPRA [Suspect]
     Active Substance: LEVETIRACETAM
     Indication: EPILEPSY
     Dosage: 2 DF, (2 UG/ LITRE) QD
     Route: 048

REACTIONS (1)
  - Hepatocellular injury [Recovered/Resolved]

NARRATIVE: CASE EVENT DATE: 20180816
